FAERS Safety Report 6006877-0 (Version None)
Quarter: 2008Q4

REPORT INFORMATION
  Report Type: 
  Country: None (occurrence: None)
  Receive Date: 20081217
  Receipt Date: 20071219
  Transmission Date: 20090506
  Serious: No
  Sender: FDA-Public Use
  Company Number: US-ASTRAZENECA-2007UW26346

PATIENT
  Age: 62 Year
  Sex: Female
  Weight: 45.4 kg

DRUGS (3)
  1. CRESTOR [Suspect]
     Indication: HYPERCHOLESTEROLAEMIA
     Route: 048
     Dates: start: 20060101, end: 20060101
  2. CRESTOR [Suspect]
     Route: 048
     Dates: start: 20071109
  3. BONIVA [Concomitant]

REACTIONS (5)
  - ABDOMINAL DISCOMFORT [None]
  - BLOOD BILIRUBIN INCREASED [None]
  - CONSTIPATION [None]
  - REFLUX OESOPHAGITIS [None]
  - WEIGHT DECREASED [None]
